FAERS Safety Report 23060203 (Version 1)
Quarter: 2023Q4

REPORT INFORMATION
  Report Type: Report from Study
  Country: CA (occurrence: CA)
  Receive Date: 20231012
  Receipt Date: 20231012
  Transmission Date: 20240109
  Serious: Yes (Other)
  Sender: FDA-Public Use
  Company Number: CA-TEVA-2023-CA-2935410

PATIENT
  Age: 84 Year
  Sex: Female

DRUGS (4)
  1. OCTREOTIDE [Suspect]
     Active Substance: OCTREOTIDE
     Indication: Carcinoid tumour
     Route: 030
     Dates: start: 20220303
  2. OCTREOTIDE [Suspect]
     Active Substance: OCTREOTIDE
     Route: 030
     Dates: start: 20220331
  3. OCTREOTIDE [Suspect]
     Active Substance: OCTREOTIDE
     Route: 030
  4. Sando Lar [Concomitant]
     Indication: Product used for unknown indication

REACTIONS (2)
  - Loss of consciousness [Recovered/Resolved]
  - Asthenia [Recovered/Resolved]

NARRATIVE: CASE EVENT DATE: 20230901
